FAERS Safety Report 5127277-1 (Version None)
Quarter: 2006Q4

REPORT INFORMATION
  Report Type: 
  Country: None (occurrence: None)
  Receive Date: 20061010
  Receipt Date: 20060927
  Transmission Date: 20070319
  Serious: Yes (Death)
  Sender: FDA-Public Use
  Company Number: 230440

PATIENT
  Age: 60 Year
  Sex: Female
  Weight: 44 kg

DRUGS (10)
  1. RITUXIMAB(RITUXIMAB) CONC FOR SOLUTION FOR INFUSION [Suspect]
     Indication: CHRONIC LYMPHOCYTIC LEUKAEMIA
     Dosage: INTRAVENOUS
     Route: 042
  2. FLUDARABINE PHOSPHATE [Suspect]
     Indication: CHRONIC LYMPHOCYTIC LEUKAEMIA
     Dosage: INTRAVENOUS
     Route: 042
  3. CYCLOPHOSPHAMIDE [Suspect]
     Indication: CHRONIC LYMPHOCYTIC LEUKAEMIA
     Dosage: INTRAVENOUS
     Route: 042
  4. METHYLPREDNISOLONE [Concomitant]
  5. DIHYDROCODEINE (DIHYDROCODEINE BITARTRATE) [Concomitant]
  6. SULFAMETHOXAZOLE [Concomitant]
  7. TRIMETHOPRIM [Concomitant]
  8. ACYCLOVIR [Concomitant]
  9. MORPHINE [Concomitant]
  10. FAMOTIDINE [Concomitant]

REACTIONS (2)
  - CARDIOPULMONARY FAILURE [None]
  - PYREXIA [None]
